FAERS Safety Report 21867110 (Version 1)
Quarter: 2023Q1

REPORT INFORMATION
  Report Type: Report from Study
  Country: US (occurrence: US)
  Receive Date: 20230116
  Receipt Date: 20230116
  Transmission Date: 20230418
  Serious: No
  Sender: FDA-Public Use
  Company Number: US-ABBVIE-4235481

PATIENT
  Sex: Male

DRUGS (2)
  1. SKYRIZI [Suspect]
     Active Substance: RISANKIZUMAB-RZAA
     Indication: Psoriasis
     Route: 058
     Dates: end: 202207
  2. Dupixent 300mg/2m1 [Concomitant]
     Indication: Dermatitis atopic
     Route: 058

REACTIONS (2)
  - Polymyalgia rheumatica [Recovering/Resolving]
  - Transient acantholytic dermatosis [Unknown]
